FAERS Safety Report 14860140 (Version 1)
Quarter: 2018Q2

REPORT INFORMATION
  Report Type: Spontaneous
  Country: US (occurrence: US)
  Receive Date: 20180422
  Receipt Date: 20180422
  Transmission Date: 20180711
  Serious: No
  Sender: FDA-Public Use
  Company Number: None

PATIENT
  Age: 27 Year
  Sex: Female
  Weight: 58.97 kg

DRUGS (4)
  1. ST. JOHN^S WORT [Concomitant]
     Active Substance: ST. JOHN^S WORT
  2. PARAGARD T 380A [Suspect]
     Active Substance: COPPER
     Dates: start: 20150401, end: 20180412
  3. BUSPIRONE [Concomitant]
     Active Substance: BUSPIRONE HYDROCHLORIDE
  4. VITEX [Concomitant]

REACTIONS (7)
  - Haemorrhage [None]
  - Muscle spasms [None]
  - Device dislocation [None]
  - Discomfort [None]
  - Pain [None]
  - Device breakage [None]
  - Complication of device removal [None]

NARRATIVE: CASE EVENT DATE: 20180412
